FAERS Safety Report 7939656-5 (Version None)
Quarter: 2011Q4

REPORT INFORMATION
  Report Type: 
  Country: None (occurrence: None)
  Receive Date: 20111125
  Receipt Date: 20111115
  Transmission Date: 20120403
  Serious: Yes (Hospitalization, Other)
  Sender: FDA-Public Use
  Company Number: PHHY2011US68825

PATIENT
  Sex: Male
  Weight: 96 kg

DRUGS (7)
  1. ALLOPURINOL [Concomitant]
     Dosage: 100 MG DAILY
     Route: 048
  2. LASIX [Concomitant]
     Dosage: 40 MG DAILY
     Route: 048
  3. EXJADE [Suspect]
     Indication: REFRACTORY ANAEMIA
     Dosage: 2000 MG, QD
     Route: 048
     Dates: start: 20110701, end: 20110711
  4. METOLAZONE [Concomitant]
     Dosage: 2.5 MG TWICE A WEEK
     Route: 048
  5. EXJADE [Suspect]
     Indication: IRON OVERLOAD
  6. COREG [Concomitant]
     Dosage: 6.25 MG DAILY
     Route: 048
  7. PLAVIX [Concomitant]
     Dosage: 75 MG DAILY
     Route: 048

REACTIONS (6)
  - RASH GENERALISED [None]
  - PYREXIA [None]
  - HYPERSENSITIVITY [None]
  - TACHYCARDIA [None]
  - RASH ERYTHEMATOUS [None]
  - ATRIAL FIBRILLATION [None]
